FAERS Safety Report 21811310 (Version 1)
Quarter: 2023Q1

REPORT INFORMATION
  Report Type: Spontaneous
  Country: US (occurrence: US)
  Receive Date: 20230103
  Receipt Date: 20230103
  Transmission Date: 20230417
  Serious: No
  Sender: FDA-Public Use
  Company Number: US-PFIZER INC-202201399894

PATIENT

DRUGS (1)
  1. PAXLOVID [Suspect]
     Active Substance: NIRMATRELVIR\RITONAVIR
     Indication: COVID-19 treatment
     Dosage: 1 PILL AND NIRMATRELVIR 2 PILLS TOGETHER 3 PILLS, EVERY DAY 2 DOSES

REACTIONS (1)
  - Pyrexia [Not Recovered/Not Resolved]
